FAERS Safety Report 4548178-3 (Version None)
Quarter: 2005Q1

REPORT INFORMATION
  Report Type: 
  Country: None (occurrence: None)
  Receive Date: 20050110
  Receipt Date: 20041230
  Transmission Date: 20050727
  Serious: Yes (Hospitalization)
  Sender: FDA-Public Use
  Company Number: 200422535GDDC

PATIENT
  Age: 43 Year
  Sex: Female

DRUGS (6)
  1. FLUDEX [Suspect]
     Dosage: DOSE: 1 DF
     Route: 048
     Dates: end: 20040914
  2. COTAREG [Suspect]
     Dosage: DOSE: 1 DF
     Route: 048
     Dates: end: 20040914
  3. LERCANIDIPINE [Suspect]
     Dosage: DOSE: 1 DF
     Route: 048
     Dates: end: 20040914
  4. DAFALGAN [Concomitant]
  5. EUPHYLLINE [Concomitant]
  6. EUPRESSYL [Concomitant]

REACTIONS (7)
  - DEHYDRATION [None]
  - DIARRHOEA [None]
  - MICROCYTIC ANAEMIA [None]
  - PRIMARY HYPERALDOSTERONISM [None]
  - RENAL FAILURE ACUTE [None]
  - RENAL MASS [None]
  - WEIGHT DECREASED [None]
